FAERS Safety Report 12422103 (Version 1)
Quarter: 2016Q2

REPORT INFORMATION
  Report Type: Report from Study
  Country: PL (occurrence: PL)
  Receive Date: 20160531
  Receipt Date: 20160531
  Transmission Date: 20160815
  Serious: Yes (Hospitalization)
  Sender: FDA-Public Use
  Company Number: PL-ROCHE-1766211

PATIENT
  Age: 53 Year
  Sex: Female
  Weight: 86 kg

DRUGS (9)
  1. LIOTON [Concomitant]
     Indication: PRURITUS
     Dosage: 1 UNIT?LIOTON 1000
     Route: 061
     Dates: start: 20160321
  2. ESPUMISAN [Concomitant]
     Active Substance: DIMETHICONE
     Indication: ABDOMINAL PAIN LOWER
     Dosage: 1 TABLET
     Route: 048
     Dates: start: 20160325
  3. POLPRAZOL [Concomitant]
     Active Substance: OMEPRAZOLE
     Indication: DYSPEPSIA
     Route: 048
     Dates: start: 20160329
  4. BEVACIZUMAB [Suspect]
     Active Substance: BEVACIZUMAB
     Indication: RENAL CELL CARCINOMA
     Dosage: MOST RECENT DOSE PRIOR TO AE ONSET GIVEN 10/MAY/2016
     Route: 042
     Dates: start: 20160125
  5. TRILAC (POLAND) [Concomitant]
     Indication: ABDOMINAL PAIN LOWER
     Dosage: 1 TABLET
     Route: 048
     Dates: start: 20160318
  6. VENORUTON (POLAND) [Concomitant]
     Indication: PRURITUS
     Dosage: 1 TABLET
     Route: 048
     Dates: start: 20160321
  7. ATEZOLIZUMAB [Suspect]
     Active Substance: ATEZOLIZUMAB
     Indication: RENAL CELL CARCINOMA
     Dosage: MOST RECENT DOSE PRIOR TO AE ONSET: 10/MAY/2016?DOSAGE USED FROM PROTOCOL
     Route: 042
     Dates: start: 20160125
  8. NEBILENIN [Concomitant]
     Indication: HYPERTENSION
     Route: 048
     Dates: start: 20160213
  9. EUTHYROX [Concomitant]
     Active Substance: LEVOTHYROXINE SODIUM
     Indication: HYPOTHYROIDISM
     Route: 048
     Dates: start: 20160421

REACTIONS (1)
  - Urosepsis [Not Recovered/Not Resolved]

NARRATIVE: CASE EVENT DATE: 20160525
